FAERS Safety Report 20322987 (Version 4)
Quarter: 2023Q2

REPORT INFORMATION
  Report Type: Report from Study
  Country: US (occurrence: US)
  Receive Date: 20220111
  Receipt Date: 20230529
  Transmission Date: 20230722
  Serious: No
  Sender: FDA-Public Use
  Company Number: US-KYOWAKIRIN-2021BKK022099

PATIENT

DRUGS (1)
  1. MOGAMULIZUMAB [Suspect]
     Active Substance: MOGAMULIZUMAB
     Indication: Product used for unknown indication
     Dosage: UNK
     Route: 042

REACTIONS (7)
  - Lip swelling [Unknown]
  - Drooling [Unknown]
  - Weight decreased [Unknown]
  - Decreased appetite [Unknown]
  - Rash macular [Unknown]
  - Nasopharyngitis [Unknown]
  - Dental care [Unknown]

NARRATIVE: CASE EVENT DATE: 20230201
